FAERS Safety Report 15264386 (Version 1)
Quarter: 2018Q3

REPORT INFORMATION
  Report Type: Spontaneous
  Country: AU (occurrence: AU)
  Receive Date: 20180810
  Receipt Date: 20180810
  Transmission Date: 20181010
  Serious: Yes (Hospitalization)
  Sender: FDA-Public Use
  Company Number: AU-LPDUSPRD-20181445

PATIENT
  Sex: Female

DRUGS (1)
  1. FERINJECT [Suspect]
     Active Substance: FERRIC CARBOXYMALTOSE
     Dosage: 1000 MG
     Route: 042
     Dates: start: 2018

REACTIONS (1)
  - Lip swelling [Unknown]

NARRATIVE: CASE EVENT DATE: 2018
